FAERS Safety Report 13739640 (Version 1)
Quarter: 2017Q3

REPORT INFORMATION
  Report Type: Spontaneous
  Country: JP (occurrence: JP)
  Receive Date: 20170711
  Receipt Date: 20170711
  Transmission Date: 20171127
  Serious: Yes (Other)
  Sender: FDA-Public Use
  Company Number: PHHY2009JP10077

PATIENT
  Age: 48 Year
  Sex: Female

DRUGS (1)
  1. MIKELAN (NVO) [Suspect]
     Active Substance: CARTEOLOL HYDROCHLORIDE
     Indication: GLAUCOMA

REACTIONS (4)
  - Oedema [Unknown]
  - Corneal epithelium defect [Recovered/Resolved]
  - Retinal detachment [Unknown]
  - Pain [Unknown]
